FAERS Safety Report 10681460 (Version 2)
Quarter: 2015Q1

REPORT INFORMATION
  Report Type: Spontaneous
  Country: FR (occurrence: FR)
  Receive Date: 20141230
  Receipt Date: 20150326
  Transmission Date: 20150720
  Serious: Yes (Hospitalization)
  Sender: FDA-Public Use
  Company Number: FR-ASTRAZENECA-2014SE98801

PATIENT
  Age: 28847 Day
  Sex: Female

DRUGS (10)
  1. INEXIUM [Suspect]
     Active Substance: ESOMEPRAZOLE
     Route: 048
     Dates: end: 20141202
  2. KARDEGIC [Suspect]
     Active Substance: ASPIRIN LYSINE
     Route: 048
     Dates: end: 20141202
  3. SERETIDE [Suspect]
     Active Substance: FLUTICASONE FUROATE\SALMETEROL XINAFOATE
     Dosage: 250/25 UG PER DOSE, 1 DF EVERY DAY
     Route: 055
     Dates: end: 20141202
  4. METHOTREXATE [Suspect]
     Active Substance: METHOTREXATE
     Indication: RHEUMATOID ARTHRITIS
     Route: 065
     Dates: start: 2001, end: 2010
  5. FLUDEX [Concomitant]
     Active Substance: INDAPAMIDE
     Route: 048
  6. METHOTREXATE (METHOTREXATE SODIUM) [Suspect]
     Active Substance: METHOTREXATE SODIUM
     Route: 048
     Dates: start: 2010, end: 20141128
  7. TOPALGIC [Suspect]
     Active Substance: TRAMADOL
     Route: 048
     Dates: end: 20141202
  8. ALTEIS [Suspect]
     Active Substance: OLMESARTAN MEDOXOMIL
     Route: 048
     Dates: end: 20141202
  9. LEVOTHYROX [Concomitant]
     Active Substance: LEVOTHYROXINE
     Route: 048
  10. MIRTAZAPINE. [Concomitant]
     Active Substance: MIRTAZAPINE
     Route: 048

REACTIONS (2)
  - Pancytopenia [Recovered/Resolved]
  - Folate deficiency [Unknown]

NARRATIVE: CASE EVENT DATE: 20141128
